FAERS Safety Report 5472659-1 (Version None)
Quarter: 2007Q3

REPORT INFORMATION
  Report Type: 
  Country: None (occurrence: None)
  Receive Date: 20070926
  Receipt Date: 20070913
  Transmission Date: 20080115
  Serious: Yes (Congenital Anomaly)
  Sender: FDA-Public Use
  Company Number: 2007S1000229

PATIENT

DRUGS (1)
  1. SORIATANE [Suspect]
     Dosage: TRPL
     Route: 064

REACTIONS (2)
  - DRUG EXPOSURE BEFORE PREGNANCY [None]
  - FOETAL MALFORMATION [None]
